FAERS Safety Report 23210641 (Version 1)
Quarter: 2023Q4

REPORT INFORMATION
  Report Type: Spontaneous
  Country: US (occurrence: US)
  Receive Date: 20231121
  Receipt Date: 20231121
  Transmission Date: 20240110
  Serious: Yes (Hospitalization)
  Sender: FDA-Public Use
  Company Number: US-MYLANLABS-2023M1122084

PATIENT
  Age: 23 Year
  Sex: Male

DRUGS (9)
  1. LITHIUM [Interacting]
     Active Substance: LITHIUM
     Indication: Schizoaffective disorder bipolar type
     Dosage: UNK
     Route: 065
  2. VALPROIC ACID [Interacting]
     Active Substance: VALPROIC ACID
     Indication: Schizoaffective disorder bipolar type
     Dosage: UNK
     Route: 065
  3. QUETIAPINE [Interacting]
     Active Substance: QUETIAPINE
     Indication: Schizoaffective disorder bipolar type
     Dosage: UNK
     Route: 065
  4. GUANFACINE [Interacting]
     Active Substance: GUANFACINE
     Indication: Schizoaffective disorder bipolar type
     Dosage: UNK
     Route: 065
  5. HALOPERIDOL [Interacting]
     Active Substance: HALOPERIDOL
     Indication: Schizoaffective disorder bipolar type
     Dosage: UNK
     Route: 065
  6. KETAMINE [Suspect]
     Active Substance: KETAMINE
     Indication: Schizoaffective disorder bipolar type
     Dosage: UNK
     Route: 065
  7. PROPOFOL [Interacting]
     Active Substance: PROPOFOL
     Indication: Schizoaffective disorder bipolar type
     Dosage: UNK
     Route: 065
  8. PALIPERIDONE [Interacting]
     Active Substance: PALIPERIDONE
     Indication: Schizoaffective disorder bipolar type
     Dosage: UNK
     Route: 065
  9. LORAZEPAM [Interacting]
     Active Substance: LORAZEPAM
     Indication: Schizoaffective disorder bipolar type
     Dosage: UNK
     Route: 065

REACTIONS (3)
  - Nephrogenic diabetes insipidus [Recovering/Resolving]
  - Drug interaction [Recovering/Resolving]
  - Off label use [Unknown]
